FAERS Safety Report 8156308-X (Version None)
Quarter: 2012Q1

REPORT INFORMATION
  Report Type: 
  Country: None (occurrence: None)
  Receive Date: 20120222
  Receipt Date: 20110503
  Transmission Date: 20120608
  Serious: No
  Sender: FDA-Public Use
  Company Number: US-BRISTOL-MYERS SQUIBB COMPANY-15718067

PATIENT
  Age: 67 Year
  Sex: Female

DRUGS (4)
  1. KENALOG [Suspect]
     Route: 014
  2. PREMARIN [Concomitant]
     Route: 048
  3. VALIUM [Concomitant]
  4. VALTREX [Concomitant]
     Indication: HERPES VIRUS INFECTION
     Dosage: TWICE DAILY THROUGH MARCH 15
     Route: 048

REACTIONS (4)
  - DIZZINESS [None]
  - NASAL CONGESTION [None]
  - MIGRAINE [None]
  - FLUSHING [None]
